FAERS Safety Report 22652720 (Version 1)
Quarter: 2023Q2

REPORT INFORMATION
  Report Type: Spontaneous
  Country: IR (occurrence: IR)
  Receive Date: 20230629
  Receipt Date: 20230629
  Transmission Date: 20230722
  Serious: Yes (Death)
  Sender: FDA-Public Use
  Company Number: IR-STRIDES ARCOLAB LIMITED-2023SP010034

PATIENT
  Age: 63 Year
  Sex: Female

DRUGS (1)
  1. METHOTREXATE [Suspect]
     Active Substance: METHOTREXATE
     Indication: Central nervous system lymphoma
     Dosage: 3 G/M2, HIGH-DOSE
     Route: 065

REACTIONS (4)
  - Pancytopenia [Fatal]
  - Blood creatinine increased [Unknown]
  - Stomatitis [Unknown]
  - Off label use [Unknown]
